FAERS Safety Report 19911357 (Version 1)
Quarter: 2021Q4

REPORT INFORMATION
  Report Type: Spontaneous
  Country: DE (occurrence: DE)
  Receive Date: 20211004
  Receipt Date: 20211004
  Transmission Date: 20220303
  Serious: Yes (Hospitalization, Other)
  Sender: FDA-Public Use
  Company Number: DE-NOVARTISPH-NVSC2021DE217164

PATIENT
  Age: 39 Year
  Sex: Male
  Weight: 69 kg

DRUGS (16)
  1. VALPROATE SODIUM [Suspect]
     Active Substance: VALPROATE SODIUM
     Indication: Epilepsy
     Dosage: 300 MG, QD
     Route: 048
     Dates: start: 20011112
  2. VALPROATE SODIUM [Suspect]
     Active Substance: VALPROATE SODIUM
     Dosage: 300 MG,QD
     Route: 048
     Dates: start: 20011113, end: 20011203
  3. METOCLOPRAMIDE HYDROCHLORIDE [Suspect]
     Active Substance: METOCLOPRAMIDE HYDROCHLORIDE
     Indication: Nausea
     Dosage: 20 DRP, Q8H
     Route: 048
     Dates: start: 20011128, end: 20011203
  4. CARBAMAZEPINE [Suspect]
     Active Substance: CARBAMAZEPINE
     Indication: Epilepsy
     Dosage: 1050 MG, QD
     Route: 048
     Dates: start: 1978
  5. CARBAMAZEPINE [Suspect]
     Active Substance: CARBAMAZEPINE
     Dosage: 600 MG, QD (SUCCESSIVE DOSE DECREASE TO 150 MG)
     Route: 048
     Dates: end: 20011112
  6. ACETAMINOPHEN [Suspect]
     Active Substance: ACETAMINOPHEN
     Indication: Nasopharyngitis
     Dosage: 500 MG
     Route: 048
     Dates: start: 20011128, end: 20011203
  7. PHENYTOIN [Suspect]
     Active Substance: PHENYTOIN
     Indication: Epilepsy
     Dosage: BETWEEN 350 AND 400 MG (100 MG,1 IN 1 D)
     Route: 048
     Dates: start: 20011025, end: 2001
  8. PHENYTOIN [Suspect]
     Active Substance: PHENYTOIN
     Dosage: 100 MG
     Route: 048
     Dates: start: 2001, end: 20011203
  9. RANITIDINE [Suspect]
     Active Substance: RANITIDINE
     Indication: Abdominal distension
     Dosage: 300 MG, QD
     Route: 048
     Dates: end: 20011203
  10. VALERIAN [Suspect]
     Active Substance: VALERIAN
     Indication: Restlessness
     Dosage: 200 MG, QD
     Route: 048
     Dates: start: 20011201, end: 20011203
  11. VALERIAN [Suspect]
     Active Substance: VALERIAN
     Indication: Product used for unknown indication
     Dosage: 200 MG, QD
     Route: 048
     Dates: start: 20011201, end: 20011203
  12. MINERALS\VITAMINS [Suspect]
     Active Substance: MINERALS\VITAMINS
     Indication: Fatigue
     Dosage: UNK
     Route: 048
     Dates: start: 20011127, end: 20011203
  13. VALPROATE SODIUM [Concomitant]
     Active Substance: VALPROATE SODIUM
     Indication: Epilepsy
     Dosage: 300 MG,QD
     Route: 048
     Dates: start: 1996, end: 1996
  14. VALPROATE SODIUM [Concomitant]
     Active Substance: VALPROATE SODIUM
     Dosage: 1000 MG,QD
     Route: 048
     Dates: start: 1996, end: 20011112
  15. VALPROATE SODIUM [Concomitant]
     Active Substance: VALPROATE SODIUM
     Dosage: 2000 MG
     Route: 065
     Dates: end: 20011113
  16. VALPROIC ACID [Suspect]
     Active Substance: VALPROIC ACID
     Indication: Epilepsy
     Dosage: 1000 MG, Q12H
     Route: 048
     Dates: start: 20011113

REACTIONS (18)
  - Epilepsy [Unknown]
  - Genital erythema [Recovering/Resolving]
  - Restlessness [Unknown]
  - Gamma-glutamyltransferase increased [Unknown]
  - Alanine aminotransferase increased [Unknown]
  - Swelling face [Recovering/Resolving]
  - Lip swelling [Recovering/Resolving]
  - Nasopharyngitis [Unknown]
  - Mucosal erosion [Recovering/Resolving]
  - Liver function test abnormal [Unknown]
  - Dysphagia [Unknown]
  - Stevens-Johnson syndrome [Recovering/Resolving]
  - Aspartate aminotransferase increased [Unknown]
  - Fatigue [Unknown]
  - Macule [Recovering/Resolving]
  - Nausea [Unknown]
  - Pyrexia [Recovering/Resolving]
  - Pruritus [Recovering/Resolving]

NARRATIVE: CASE EVENT DATE: 20011127
